FAERS Safety Report 9070773 (Version 3)
Quarter: 2013Q2

REPORT INFORMATION
  Report Type: Spontaneous
  Country: GB (occurrence: GB)
  Receive Date: 20130129
  Receipt Date: 20130411
  Transmission Date: 20140414
  Serious: Yes (Death, Life-Threatening, Hospitalization, Other)
  Sender: FDA-Public Use
  Company Number: GB-JNJFOC-20130111168

PATIENT
  Sex: Male

DRUGS (8)
  1. ZYTIGA [Suspect]
     Indication: PROSTATE CANCER METASTATIC
     Route: 048
     Dates: start: 20120806, end: 20130105
  2. OMEPRAZOLE [Concomitant]
     Indication: DYSPEPSIA
     Route: 065
  3. PREDNISOLONE [Concomitant]
     Indication: PROSTATE CANCER METASTATIC
     Route: 065
  4. PARACETAMOL [Concomitant]
     Indication: PAIN
     Route: 065
  5. DOCUSATE [Concomitant]
     Indication: CONSTIPATION
     Route: 065
  6. SENNA [Concomitant]
     Indication: CONSTIPATION
     Dosage: TWO TABLETS
     Route: 065
  7. ORAMORPH [Concomitant]
     Indication: PAIN
     Dosage: AS REQUIRED
     Route: 065
  8. BUCCASTEM [Concomitant]
     Indication: MALAISE
     Dosage: AS REQUIRED
     Route: 065

REACTIONS (5)
  - Metastases to liver [Fatal]
  - Intestinal dilatation [Not Recovered/Not Resolved]
  - Blood magnesium decreased [Not Recovered/Not Resolved]
  - Blood potassium decreased [Not Recovered/Not Resolved]
  - Urinary tract infection [Unknown]
